FAERS Safety Report 5781560-5 (Version None)
Quarter: 2008Q2

REPORT INFORMATION
  Report Type: 
  Country: None (occurrence: None)
  Receive Date: 20080623
  Receipt Date: 20070815
  Transmission Date: 20081010
  Serious: No
  Sender: FDA-Public Use
  Company Number: US-ASTRAZENECA-2007UW19735

PATIENT
  Age: 84 Year
  Sex: Male
  Weight: 117.9 kg

DRUGS (8)
  1. RHINOCORT [Suspect]
     Indication: PARANASAL SINUS HYPERSECRETION
     Route: 045
     Dates: start: 20070813
  2. RHINOCORT [Suspect]
     Indication: RHINORRHOEA
     Route: 045
     Dates: start: 20070813
  3. RHINOCORT [Suspect]
     Indication: COUGH
     Route: 045
     Dates: start: 20070813
  4. LIPITOR [Concomitant]
  5. LIBRIUM [Concomitant]
  6. LASIX [Concomitant]
  7. LOPRESSOR [Concomitant]
  8. MULTI-VITAMIN [Concomitant]

REACTIONS (2)
  - DIPLOPIA [None]
  - PAIN [None]
